FAERS Safety Report 7011803-1 (Version None)
Quarter: 2010Q3

REPORT INFORMATION
  Report Type: 
  Country: None (occurrence: None)
  Receive Date: 20100923
  Receipt Date: 20100225
  Transmission Date: 20110219
  Serious: No
  Sender: FDA-Public Use
  Company Number: US-WYE-H13909710

PATIENT
  Age: 88 Year
  Sex: Female
  Weight: 43.13 kg

DRUGS (3)
  1. ADVIL PM [Suspect]
     Indication: CARPAL TUNNEL SYNDROME
     Dosage: 2 LIQUI GELS AS NEEDED
     Route: 048
     Dates: start: 20091201, end: 20100201
  2. ADVIL PM [Suspect]
     Indication: PAIN
  3. LOTREL [Concomitant]

REACTIONS (1)
  - RESTLESSNESS [None]
